FAERS Safety Report 12997511 (Version 1)
Quarter: 2016Q4

REPORT INFORMATION
  Report Type: Spontaneous
  Country: US (occurrence: US)
  Receive Date: 20161202
  Receipt Date: 20161202
  Transmission Date: 20170207
  Serious: No
  Sender: FDA-Public Use
  Company Number: None

PATIENT
  Age: 34 Year
  Sex: Female
  Weight: 108.5 kg

DRUGS (1)
  1. RISPERIDONE. [Suspect]
     Active Substance: RISPERIDONE
     Dosage: 50 MG OTHER IM
     Route: 030
     Dates: start: 20130726, end: 20130830

REACTIONS (1)
  - Hyperprolactinaemia [None]

NARRATIVE: CASE EVENT DATE: 20130828
